FAERS Safety Report 7956148-8 (Version None)
Quarter: 2011Q4

REPORT INFORMATION
  Report Type: 
  Country: None (occurrence: None)
  Receive Date: 20111116
  Receipt Date: 20111109
  Transmission Date: 20120403
  Serious: Yes (Hospitalization, Other)
  Sender: FDA-Public Use
  Company Number: AEUSA201100309

PATIENT
  Sex: Male

DRUGS (4)
  1. FLUCONAZOLE [Concomitant]
  2. BACTRIM [Concomitant]
  3. ACYCLOVIR [Concomitant]
  4. GAMUNEX [Suspect]
     Indication: PLATELET COUNT DECREASED
     Dosage: 20 GM; IV
     Route: 042
     Dates: start: 20111026

REACTIONS (4)
  - BRADYCARDIA [None]
  - HYPOTHERMIA [None]
  - INFUSION RELATED REACTION [None]
  - HYPOTENSION [None]
